FAERS Safety Report 10744402 (Version 5)
Quarter: 2015Q2

REPORT INFORMATION
  Report Type: Report from Study
  Country: US (occurrence: None)
  Receive Date: 20150126
  Receipt Date: 20150520
  Transmission Date: 20150821
  Serious: Yes (Hospitalization)
  Sender: FDA-Public Use
  Company Number: 2015SGN00026

PATIENT
  Age: 32 Year
  Sex: Female
  Weight: 98.3 kg

DRUGS (18)
  1. BENDAMUSTINE HYDROCHLORIDE (BENDAMUSTINE HYDROCHLORIDE) [Suspect]
     Active Substance: BENDAMUSTINE HYDROCHLORIDE
     Indication: HODGKIN^S DISEASE
     Dosage: 90 MG/M2, QCYCLE
     Route: 042
     Dates: start: 20140204, end: 20140225
  2. RAMIPRIL. [Concomitant]
     Active Substance: RAMIPRIL
  3. OXYCODONE [Concomitant]
     Active Substance: OXYCODONE
  4. SYNTHROID [Concomitant]
     Active Substance: LEVOTHYROXINE SODIUM
  5. GABAPENTIN. [Concomitant]
     Active Substance: GABAPENTIN
  6. COREG [Concomitant]
     Active Substance: CARVEDILOL
  7. PROTONIX [Concomitant]
     Active Substance: PANTOPRAZOLE SODIUM
  8. SERTRALINE [Concomitant]
     Active Substance: SERTRALINE HYDROCHLORIDE
  9. ONDANSETRON (ONDEANSETRON HYDROCHLORIDE) [Concomitant]
  10. ACYCLOVIR (ACICLOVIR) (ACICLOVIR) [Concomitant]
     Active Substance: ACYCLOVIR
  11. TEMAZEPAM. [Concomitant]
     Active Substance: TEMAZEPAM
  12. BUPROPION [Concomitant]
     Active Substance: BUPROPION
  13. K-TAB (POTASSIUM CHLORIDE) [Concomitant]
  14. ERGOCALCIFEROL. [Concomitant]
     Active Substance: ERGOCALCIFEROL
  15. LAMICTAL [Concomitant]
     Active Substance: LAMOTRIGINE
  16. ZANAFLEX (TIZANIDIEN HYDROCHLORIDE) [Concomitant]
     Indication: HODGKIN^S DISEASE
     Dosage: 90 MG/M2, QCYCLE
     Route: 042
     Dates: start: 20140204, end: 20140225
  17. ATIVAN [Concomitant]
     Active Substance: LORAZEPAM
  18. BRENTUXIMAB VEDOTIN (BRENTUXIMAB VEDOTIN) INJECTION [Suspect]
     Active Substance: BRENTUXIMAB VEDOTIN
     Indication: HODGKIN^S DISEASE
     Dosage: 1.8 MG/KG, Q21D
     Route: 042
     Dates: start: 20140204, end: 20141219

REACTIONS (6)
  - Febrile neutropenia [None]
  - Injection site swelling [None]
  - Phlebitis infective [None]
  - Injection site warmth [None]
  - Vena cava thrombosis [None]
  - Infusion site extravasation [None]

NARRATIVE: CASE EVENT DATE: 20141224
